FAERS Safety Report 4857049-4 (Version None)
Quarter: 2005Q4

REPORT INFORMATION
  Report Type: 
  Country: None (occurrence: None)
  Receive Date: 20051219
  Receipt Date: 20041216
  Transmission Date: 20060501
  Serious: No
  Sender: FDA-Public Use
  Company Number: US-GLAXOSMITHKLINE-A0537580A

PATIENT
  Age: 55 Year
  Sex: Female

DRUGS (3)
  1. NICODERM CQ [Suspect]
  2. NICODERM CQ [Suspect]
  3. CHEMOTHERAPY [Concomitant]

REACTIONS (3)
  - NERVOUSNESS [None]
  - NICOTINE DEPENDENCE [None]
  - STRESS [None]
